FAERS Safety Report 6666905-6 (Version None)
Quarter: 2010Q2

REPORT INFORMATION
  Report Type: 
  Country: None (occurrence: None)
  Receive Date: 20100405
  Receipt Date: 20100322
  Transmission Date: 20101027
  Serious: Yes (Hospitalization, Other)
  Sender: FDA-Public Use
  Company Number: PHHY2010BR17327

PATIENT
  Age: 75 Year
  Sex: Male
  Weight: 89 kg

DRUGS (3)
  1. FORASEQ [Suspect]
     Indication: ASTHMA
     Dosage: 1 DF, BID
  2. FORASEQ [Suspect]
     Indication: BRONCHITIS
  3. RIVOTRIL [Concomitant]
     Indication: SLEEP DISORDER
     Dosage: 2 MG, UNK

REACTIONS (5)
  - CONCOMITANT DISEASE PROGRESSION [None]
  - GAIT DISTURBANCE [None]
  - INTERVERTEBRAL DISC PROTRUSION [None]
  - SENSORY LOSS [None]
  - SPINAL DISORDER [None]
